FAERS Safety Report 6420681-0 (Version None)
Quarter: 2009Q4

REPORT INFORMATION
  Report Type: 
  Country: None (occurrence: None)
  Receive Date: 20091027
  Receipt Date: 20091015
  Transmission Date: 20100525
  Serious: Yes (Other)
  Sender: FDA-Public Use
  Company Number: 8053319

PATIENT
  Sex: Male

DRUGS (5)
  1. KEPPRA [Suspect]
     Indication: EPILEPSY
     Dosage: 1000 MG /D TRP
     Route: 064
     Dates: start: 20080920, end: 20081201
  2. KEPPRA [Suspect]
     Indication: EPILEPSY
     Dosage: 1500 MG TRP
     Route: 064
     Dates: start: 20090201, end: 20090618
  3. KEPPRA [Suspect]
     Indication: EPILEPSY
     Dosage: 1000 MG /D TRP
     Route: 064
     Dates: start: 20081201, end: 20090201
  4. VITAMIN TAB [Concomitant]
  5. FOLIC ACID [Concomitant]

REACTIONS (4)
  - AMNIOTIC FLUID VOLUME DECREASED [None]
  - FOETAL GROWTH RETARDATION [None]
  - MATERNAL DEATH AFFECTING FOETUS [None]
  - SMALL FOR DATES BABY [None]
